FAERS Safety Report 7628537-2 (Version None)
Quarter: 2011Q3

REPORT INFORMATION
  Report Type: 
  Country: None (occurrence: None)
  Receive Date: 20110722
  Receipt Date: 20110714
  Transmission Date: 20111222
  Serious: Yes (Hospitalization, Other)
  Sender: FDA-Public Use
  Company Number: JP-ASTELLAS-2011JP003459

PATIENT
  Sex: Male

DRUGS (13)
  1. THYMOGLOBULIN [Concomitant]
     Indication: IMMUNOSUPPRESSANT DRUG THERAPY
     Route: 065
  2. STEROID [Concomitant]
     Indication: PROPHYLAXIS AGAINST TRANSPLANT REJECTION
     Route: 065
  3. SULFAMETHOXAZOLE [Concomitant]
     Indication: TRANSPLANT
     Dosage: 0.5 G, UID/QD
     Route: 048
     Dates: start: 20101016
  4. PROGRAF [Suspect]
     Indication: PROPHYLAXIS AGAINST TRANSPLANT REJECTION
     Dosage: 0.03 MG/KG, UNKNOWN/D
     Route: 065
  5. ENTERONON [Concomitant]
     Indication: SMALL INTESTINE TRANSPLANT
     Dosage: 1 G, TID
     Route: 048
     Dates: start: 20101204
  6. PANVITAN [Concomitant]
     Indication: SMALL INTESTINE TRANSPLANT
     Dosage: 0.5 G, BID
     Route: 048
     Dates: start: 20101220
  7. RABEPRAZOLE SODIUM [Concomitant]
     Dosage: 10 MG, UID/QD
     Route: 048
     Dates: start: 20101002
  8. CEFOPERAZONE SODIUM [Concomitant]
     Indication: BILIARY TRACT INFECTION
     Dosage: 0.5 G, BID
     Route: 041
     Dates: start: 20110106, end: 20110109
  9. PROGRAF [Suspect]
     Dosage: 2 MG, BID
     Route: 048
     Dates: start: 20100817
  10. MIYA BM [Concomitant]
     Indication: SMALL INTESTINE TRANSPLANT
     Dosage: 2 G, TID
     Route: 048
     Dates: start: 20101204
  11. URSO 250 [Concomitant]
     Indication: HEPATIC FUNCTION ABNORMAL
     Dosage: 100 MG, TID
     Route: 048
     Dates: start: 20101016
  12. MARZULENE-S [Concomitant]
     Dosage: 4 G, UNKNOWN/D
     Route: 048
     Dates: start: 20101001
  13. URSO 250 [Concomitant]
     Indication: LIVER TRANSPLANT

REACTIONS (3)
  - BILIARY TRACT INFECTION [None]
  - OFF LABEL USE [None]
  - INFLUENZA [None]
